FAERS Safety Report 5930808-2 (Version None)
Quarter: 2008Q4

REPORT INFORMATION
  Report Type: 
  Country: None (occurrence: None)
  Receive Date: 20081027
  Receipt Date: 20081015
  Transmission Date: 20090506
  Serious: Yes (Other)
  Sender: FDA-Public Use
  Company Number: US-ROCHE-588956

PATIENT
  Sex: Male
  Weight: 57.6 kg

DRUGS (8)
  1. PEG-INTERFERON A-2A (RO 25-8310) [Suspect]
     Indication: HEPATITIS C
     Dosage: FORM: PFS SUSPENDED FOR TWO WEEKS
     Route: 065
     Dates: start: 20080630
  2. PEG-INTERFERON A-2A (RO 25-8310) [Suspect]
     Route: 065
     Dates: start: 20080822
  3. RIBAVIRIN [Suspect]
     Indication: HEPATITIS C
     Dosage: SUSPENDED FOR TWO WEEKS
     Route: 065
     Dates: start: 20080630
  4. RIBAVIRIN [Suspect]
     Route: 065
     Dates: start: 20080822
  5. NORVIR [Concomitant]
  6. TRUVADA [Concomitant]
  7. ACYCLOVIR [Concomitant]
  8. LEXIVA [Concomitant]

REACTIONS (1)
  - CONVULSION [None]
